FAERS Safety Report 15929442 (Version 2)
Quarter: 2020Q3

REPORT INFORMATION
  Report Type: Spontaneous
  Country: US (occurrence: US)
  Receive Date: 20190206
  Receipt Date: 20200831
  Transmission Date: 20201102
  Serious: Yes (Other)
  Sender: FDA-Public Use
  Company Number: US-GILEAD-2019-0387807

PATIENT
  Age: 43 Year
  Sex: Male
  Weight: 74.83 kg

DRUGS (30)
  1. LYRICA [Concomitant]
     Active Substance: PREGABALIN
  2. BIKTARVY [Concomitant]
     Active Substance: BICTEGRAVIR SODIUM\EMTRICITABINE\TENOFOVIR ALAFENAMIDE FUMARATE
  3. AZITHROMYCIN ANHYDROUS. [Concomitant]
     Active Substance: AZITHROMYCIN ANHYDROUS
  4. LEVOFLOXACIN. [Concomitant]
     Active Substance: LEVOFLOXACIN
  5. TRUVADA [Suspect]
     Active Substance: EMTRICITABINE\TENOFOVIR DISOPROXIL FUMARATE
     Dosage: UNK
     Route: 048
     Dates: start: 20120320, end: 201209
  6. ESOMEPRAZOLE MAGNESIUM. [Concomitant]
     Active Substance: ESOMEPRAZOLE MAGNESIUM
  7. PREZISTA [Concomitant]
     Active Substance: DARUNAVIR ETHANOLATE
  8. METOCLOPRAMIDE. [Concomitant]
     Active Substance: METOCLOPRAMIDE
  9. MINOCYCLINE [Concomitant]
     Active Substance: MINOCYCLINE HYDROCHLORIDE
  10. MUCINEX [Concomitant]
     Active Substance: GUAIFENESIN
  11. OMEPRAZOLE. [Concomitant]
     Active Substance: OMEPRAZOLE
  12. TRUVADA [Suspect]
     Active Substance: EMTRICITABINE\TENOFOVIR DISOPROXIL FUMARATE
     Indication: HIV INFECTION
     Dosage: UNK
     Route: 048
     Dates: start: 2004, end: 2012
  13. NORVIR [Concomitant]
     Active Substance: RITONAVIR
  14. CEPHALEXIN [CEFALEXIN] [Concomitant]
     Active Substance: CEPHALEXIN
  15. CYMBALTA [Concomitant]
     Active Substance: DULOXETINE HYDROCHLORIDE
  16. PRAVASTATIN. [Concomitant]
     Active Substance: PRAVASTATIN
  17. PRAVASTATIN SODIUM. [Concomitant]
     Active Substance: PRAVASTATIN SODIUM
  18. STRIBILD [Suspect]
     Active Substance: COBICISTAT\ELVITEGRAVIR\EMTRICITABINE\TENOFOVIR DISOPROXIL FUMARATE
     Dosage: UNK
     Route: 048
     Dates: start: 201409, end: 20160415
  19. GENVOYA [Concomitant]
     Active Substance: COBICISTAT\ELVITEGRAVIR\EMTRICITABINE\TENOFOVIR ALAFENAMIDE FUMARATE
  20. AMBIEN [Concomitant]
     Active Substance: ZOLPIDEM TARTRATE
  21. FENTANYL. [Concomitant]
     Active Substance: FENTANYL
  22. NAPROXEN. [Concomitant]
     Active Substance: NAPROXEN
  23. NORVASC [Concomitant]
     Active Substance: AMLODIPINE BESYLATE
  24. LOSARTAN. [Concomitant]
     Active Substance: LOSARTAN
  25. AMOXICILLIN. [Concomitant]
     Active Substance: AMOXICILLIN
  26. LIPITOR [Concomitant]
     Active Substance: ATORVASTATIN CALCIUM
  27. STRIBILD [Suspect]
     Active Substance: COBICISTAT\ELVITEGRAVIR\EMTRICITABINE\TENOFOVIR DISOPROXIL FUMARATE
     Indication: HIV INFECTION
     Dosage: UNK
     Route: 048
     Dates: start: 2012, end: 2016
  28. LORTAB [LORATADINE] [Concomitant]
     Active Substance: LORATADINE
  29. LEVITRA [Concomitant]
     Active Substance: VARDENAFIL HYDROCHLORIDE
  30. PROAIR HFA [Concomitant]
     Active Substance: ALBUTEROL SULFATE

REACTIONS (15)
  - Renal impairment [Unknown]
  - Ankle fracture [Not Recovered/Not Resolved]
  - Blood creatinine increased [Unknown]
  - Lower limb fracture [Unknown]
  - Pain [Not Recovered/Not Resolved]
  - Anhedonia [Not Recovered/Not Resolved]
  - Economic problem [Not Recovered/Not Resolved]
  - Osteoporosis [Unknown]
  - Renal disorder [Unknown]
  - Renal failure [Not Recovered/Not Resolved]
  - Emotional distress [Not Recovered/Not Resolved]
  - Bone density decreased [Not Recovered/Not Resolved]
  - Anxiety [Not Recovered/Not Resolved]
  - Hand fracture [Recovered/Resolved]
  - Depression [Not Recovered/Not Resolved]

NARRATIVE: CASE EVENT DATE: 2012
